FAERS Safety Report 8764303 (Version 2)
Quarter: 2012Q4

REPORT INFORMATION
  Report Type: Report from Study
  Country: FR (occurrence: FR)
  Receive Date: 20120831
  Receipt Date: 20120831
  Transmission Date: 20130627
  Serious: Yes (Hospitalization)
  Sender: FDA-Public Use
  Company Number: FR-VERTEX PHARMACEUTICAL INC.-2012-020361

PATIENT

DRUGS (18)
  1. VX-950 [Suspect]
     Indication: HEPATITIS C
     Dosage: 750 mg, tid
     Route: 048
     Dates: start: 20110808, end: 20111102
  2. MORPHINE [Interacting]
     Indication: PRODUCT USED FOR UNKNOWN INDICATION
     Dosage: 100 mg, tid
     Route: 048
     Dates: start: 20100618
  3. MORPHINE [Interacting]
     Dosage: UNK
     Route: 048
  4. OXAZEPAM [Interacting]
     Indication: PRODUCT USED FOR UNKNOWN INDICATION
     Dosage: 100 mg, bid
     Route: 048
     Dates: start: 20091203
  5. OXAZEPAM [Interacting]
     Dosage: UNK
     Route: 048
  6. COPEGUS [Concomitant]
     Indication: HEPATITIS C
     Dosage: Dosage Form: Tablet
     Route: 048
     Dates: start: 20110712
  7. PEGASYS [Concomitant]
     Indication: HEPATITIS C
     Dosage: Dosage Form: Injection
     Route: 058
     Dates: start: 20110712
  8. TRUVADA [Concomitant]
     Indication: HIV INFECTION
     Dosage: Dosage Form: Tablet
     Route: 048
     Dates: start: 20070716
  9. REYATAZ [Concomitant]
     Indication: HIV INFECTION
     Dosage: Dosage Form: Capsule
     Route: 048
     Dates: start: 20070716
  10. SEROPLEX [Concomitant]
     Route: 048
     Dates: start: 20100112
  11. NEORECORMON [Concomitant]
     Indication: HAEMOGLOBIN DECREASED
     Dates: start: 20111004
  12. LEVOTHYROX [Concomitant]
     Route: 065
     Dates: start: 20050308
  13. DOLIPRANE [Concomitant]
  14. BACTRIM [Concomitant]
     Dosage: Dosage Form: Unspecified
  15. VENTOLIN [Concomitant]
     Dosage: Dosage Form: Unspecified
  16. FORTIMEL [Concomitant]
     Dosage: Dosage Form: Unspecified
  17. MOPRAL [Concomitant]
     Dosage: Dosage Form: Unspecified
  18. LASILIX [Concomitant]

REACTIONS (3)
  - Respiratory failure [Recovered/Resolved]
  - Altered state of consciousness [Recovered/Resolved]
  - Drug interaction [Recovered/Resolved]
